FAERS Safety Report 6779967-2 (Version None)
Quarter: 2010Q2

REPORT INFORMATION
  Report Type: 
  Country: None (occurrence: None)
  Receive Date: 20100618
  Receipt Date: 20100607
  Transmission Date: 20101027
  Serious: Yes (Hospitalization)
  Sender: FDA-Public Use
  Company Number: FR-ALLERGAN-1007378US

PATIENT
  Age: 44 Year
  Sex: Female

DRUGS (3)
  1. BOTOX [Suspect]
     Indication: MYOFASCIAL PAIN SYNDROME
     Dosage: UNK
     Route: 030
     Dates: start: 20100409, end: 20100409
  2. KETUM [Suspect]
     Indication: MYOFASCIAL PAIN SYNDROME
     Dosage: 2.5%, 3DF DAILY
     Route: 061
     Dates: start: 20100415, end: 20100417
  3. FELDENE [Suspect]
     Indication: MYOFASCIAL PAIN SYNDROME
     Dosage: 20 MG/ML
     Route: 030
     Dates: start: 20100415, end: 20100417

REACTIONS (2)
  - PHOTOSENSITIVITY REACTION [None]
  - PRURITUS [None]
